FAERS Safety Report 6885170-8 (Version None)
Quarter: 2010Q3

REPORT INFORMATION
  Report Type: 
  Country: None (occurrence: None)
  Receive Date: 20100729
  Receipt Date: 20071213
  Transmission Date: 20110219
  Serious: Yes (Other)
  Sender: FDA-Public Use
  Company Number: US-PFIZER INC-2007104688

PATIENT
  Sex: Female
  Weight: 59 kg

DRUGS (6)
  1. CELEBREX [Suspect]
     Indication: SPONDYLITIS
  2. CELEBREX [Suspect]
     Indication: PAIN
  3. CHANTIX [Suspect]
     Indication: EX-TOBACCO USER
     Dates: start: 20071028
  4. NAPROXEN [Concomitant]
     Indication: SCOLIOSIS
  5. NAPROXEN [Concomitant]
     Indication: BACK PAIN
  6. NAPROXEN [Concomitant]
     Indication: ARTHRITIS

REACTIONS (3)
  - ABDOMINAL PAIN [None]
  - FLATULENCE [None]
  - WEIGHT INCREASED [None]
